FAERS Safety Report 15772323 (Version 2)
Quarter: 2018Q4

REPORT INFORMATION
  Report Type: Spontaneous
  Country: CN (occurrence: CN)
  Receive Date: 20181228
  Receipt Date: 20181231
  Transmission Date: 20190205
  Serious: Yes (Other)
  Sender: FDA-Public Use
  Company Number: CN-PFIZER INC-2018521263

PATIENT
  Age: 52 Year
  Sex: Female
  Weight: 66 kg

DRUGS (4)
  1. CISPLATIN. [Suspect]
     Active Substance: CISPLATIN
     Indication: PELVIC NEOPLASM
     Dosage: 90 MG, CYCLIC FOR THE FIRST AND SECOND CYCLES (THREE CYCLES)
     Route: 042
  2. PACLITAXEL. [Suspect]
     Active Substance: PACLITAXEL
     Dosage: 210 MG, CYCLIC (THREE CYCLES)
     Route: 042
  3. CISPLATIN. [Suspect]
     Active Substance: CISPLATIN
     Dosage: 100 MG, CYCLIC (THREE CYCLES)
     Route: 042
  4. PACLITAXEL. [Suspect]
     Active Substance: PACLITAXEL
     Indication: PELVIC NEOPLASM
     Dosage: 240 MG, CYCLIC FOR THE FIRST AND SECOND CYCLES (THREE CYCLES)
     Route: 042

REACTIONS (3)
  - Neurotoxicity [Unknown]
  - Neuropathy peripheral [Unknown]
  - Nervous system disorder [Unknown]
